FAERS Safety Report 26149789 (Version 1)
Quarter: 2025Q4

REPORT INFORMATION
  Report Type: Spontaneous
  Country: US (occurrence: None)
  Receive Date: 20251211
  Receipt Date: 20251211
  Transmission Date: 20260118
  Serious: Yes (Hospitalization)
  Sender: FDA-CTU
  Company Number: None

PATIENT
  Age: 46 Year
  Sex: Female

DRUGS (2)
  1. KISQALI [Suspect]
     Active Substance: RIBOCICLIB SUCCINATE
     Indication: Breast cancer female
     Dosage: FREQUENCY : DAILY;?LDAILYFOR 3 WEEKS ON THEN 1 WEEK OFF
  2. XARELTO [Suspect]
     Active Substance: RIVAROXABAN

REACTIONS (10)
  - Pruritus [None]
  - Scab [None]
  - Alopecia [None]
  - Fatigue [None]
  - Nausea [None]
  - Vision blurred [None]
  - Thrombosis [None]
  - Pain in extremity [None]
  - Heart rate decreased [None]
  - Anal haemorrhage [None]
